FAERS Safety Report 6411259-3 (Version None)
Quarter: 2009Q4

REPORT INFORMATION
  Report Type: 
  Country: None (occurrence: None)
  Receive Date: 20091022
  Receipt Date: 20091014
  Transmission Date: 20100525
  Serious: Yes (Hospitalization)
  Sender: FDA-Public Use
  Company Number: JP-PFIZER INC-2009269510

PATIENT
  Age: 34 Year

DRUGS (1)
  1. METHYLPREDNISOLONE AND METHYLPREDNISOLONE ACETATE AND METHYLPREDNISOLO [Suspect]
     Indication: MYOSITIS
     Dosage: 1.5 G, 1X/DAY

REACTIONS (4)
  - HYPERALDOSTERONISM [None]
  - HYPOKALAEMIA [None]
  - MYASTHENIA GRAVIS [None]
  - RHABDOMYOLYSIS [None]
